FAERS Safety Report 19735924 (Version 1)
Quarter: 2021Q3

REPORT INFORMATION
  Report Type: Spontaneous
  Country: US (occurrence: US)
  Receive Date: 20210823
  Receipt Date: 20210823
  Transmission Date: 20211014
  Serious: No
  Sender: FDA-Public Use
  Company Number: US-SA-2021SA276348

PATIENT
  Age: 49 Year
  Sex: Female

DRUGS (9)
  1. SINGULAIR [Concomitant]
     Active Substance: MONTELUKAST SODIUM
  2. VITAMIN D3 [Concomitant]
     Active Substance: CHOLECALCIFEROL
  3. CYMBALTA [Concomitant]
     Active Substance: DULOXETINE HYDROCHLORIDE
     Dosage: UNK
  4. ALBUTEROL SULFATE HFA [Concomitant]
     Active Substance: ALBUTEROL SULFATE
  5. KLONOPIN [Concomitant]
     Active Substance: CLONAZEPAM
  6. MELOXICAM. [Concomitant]
     Active Substance: MELOXICAM
  7. DUPIXENT [Suspect]
     Active Substance: DUPILUMAB
     Indication: ASTHMA
     Dosage: 600 MG, 1X
     Route: 058
  8. ABILIFY [Concomitant]
     Active Substance: ARIPIPRAZOLE
  9. DUPIXENT [Suspect]
     Active Substance: DUPILUMAB
     Dosage: 300 MG, QOW
     Route: 058

REACTIONS (3)
  - SARS-CoV-2 test positive [Unknown]
  - COVID-19 [Unknown]
  - Product use issue [Unknown]

NARRATIVE: CASE EVENT DATE: 20210813
